FAERS Safety Report 4976847-X (Version None)
Quarter: 2006Q1

REPORT INFORMATION
  Report Type: 
  Country: None (occurrence: None)
  Receive Date: 20060317
  Receipt Date: 20060308
  Transmission Date: 20060701
  Serious: Yes (Other)
  Sender: FDA-Public Use
  Company Number: GAM-047-06-USA

PATIENT
  Age: 33 Year
  Sex: Female
  Weight: 50 kg

DRUGS (5)
  1. OCTAGAM [Suspect]
     Indication: ABORTION SPONTANEOUS
     Dosage: 25GM 1X IV
     Route: 042
     Dates: start: 20060112
  2. OCTAGAM [Suspect]
     Indication: ABORTION SPONTANEOUS
     Dosage: 25GM 1X IV
     Route: 042
     Dates: start: 20060203
  3. ASPIRIN [Concomitant]
  4. FOLGARD OS [Concomitant]
  5. VITAMIN AND MINERAL PRENATAL SUPPLEMENT W/ FOLIC ACID CAP [Concomitant]

REACTIONS (7)
  - BACK PAIN [None]
  - COUGH [None]
  - DERMATITIS CONTACT [None]
  - DYSPNOEA [None]
  - ECZEMA NUMMULAR [None]
  - RASH [None]
  - RASH PRURITIC [None]
